FAERS Safety Report 7769325-6 (Version None)
Quarter: 2011Q3

REPORT INFORMATION
  Report Type: 
  Country: None (occurrence: None)
  Receive Date: 20110922
  Receipt Date: 20110919
  Transmission Date: 20111222
  Serious: Yes (Hospitalization)
  Sender: FDA-Public Use
  Company Number: FR-ROCHE-801658

PATIENT
  Sex: Female

DRUGS (15)
  1. BONIVA [Suspect]
     Route: 048
     Dates: start: 20100201, end: 20110520
  2. PAROXETINE HCL [Suspect]
     Route: 048
     Dates: start: 20110701
  3. PANTOPRAZOLE SODIUM [Suspect]
     Route: 048
     Dates: start: 20100224
  4. FORLAX [Suspect]
     Route: 048
     Dates: start: 20100224
  5. EQUANIL [Suspect]
     Route: 048
     Dates: start: 20101112, end: 20110513
  6. PAROXETINE HCL [Suspect]
     Route: 048
     Dates: start: 20100706
  7. PAROXETINE HCL [Suspect]
     Dosage: DOSE DECREASED TO 0.5 IN JULY.
     Route: 048
  8. ACETAMINOPHEN [Suspect]
     Route: 048
     Dates: start: 20100224
  9. BISOPROLOL FUMARATE [Suspect]
     Route: 048
     Dates: start: 20100224
  10. LEXOMIL [Suspect]
     Route: 048
     Dates: start: 20100817, end: 20110427
  11. ASPIRIN [Suspect]
     Route: 048
     Dates: start: 20110919
  12. BISOPROLOL FUMARATE [Suspect]
     Route: 048
     Dates: start: 20101024
  13. ATORVASTATIN CALCIUM [Suspect]
     Route: 048
     Dates: start: 20100723, end: 20110425
  14. ESIDRIX [Suspect]
     Route: 048
     Dates: start: 20100201, end: 20110420
  15. ZOLPIDEM [Suspect]
     Route: 048
     Dates: start: 20100224

REACTIONS (4)
  - ECZEMA [None]
  - EOSINOPHILIA [None]
  - PRURIGO [None]
  - PRURITUS GENERALISED [None]
